FAERS Safety Report 10187843 (Version 1)
Quarter: 2014Q2

REPORT INFORMATION
  Report Type: Spontaneous
  Country: IT (occurrence: None)
  Receive Date: 20140520
  Receipt Date: 20140520
  Transmission Date: 20141212
  Serious: Yes (Hospitalization)
  Sender: FDA-Public Use
  Company Number: 2014AP002955

PATIENT
  Age: 73 Year
  Sex: Male

DRUGS (5)
  1. CLARITHROMYCIN [Suspect]
     Indication: BRONCHITIS
     Route: 048
     Dates: start: 20140331, end: 20140404
  2. METFORMIN [Concomitant]
  3. ATORVASTATIN (ATORVASTATIN) TABLET [Concomitant]
  4. RAMIPRIL (RAMIPRIL) [Concomitant]
  5. TICLOPIDINE [Concomitant]

REACTIONS (4)
  - Asthenia [None]
  - Malaise [None]
  - Decreased appetite [None]
  - Blood sodium decreased [None]
